FAERS Safety Report 5764859-8 (Version None)
Quarter: 2008Q2

REPORT INFORMATION
  Report Type: 
  Country: None (occurrence: None)
  Receive Date: 20080611
  Receipt Date: 20080530
  Transmission Date: 20081010
  Serious: Yes (Hospitalization)
  Sender: FDA-Public Use
  Company Number: US-ELI_LILLY_AND_COMPANY-US200805000308

PATIENT
  Sex: Female

DRUGS (5)
  1. FORTEO [Suspect]
     Indication: OSTEOPOROSIS
     Dosage: 20 UG, DAILY (1/D)
     Dates: start: 20060101
  2. ABILIFY [Concomitant]
     Dosage: UNK D/F, UNK
  3. EFFEXOR [Concomitant]
     Dosage: UNK D/F, UNK
  4. METHOTREXATE [Concomitant]
     Dosage: UNK D/F, UNK
  5. PREDNISONE TAB [Concomitant]
     Dosage: UNK D/F, UNK

REACTIONS (1)
  - MENTAL DISORDER [None]
